FAERS Safety Report 14619108 (Version 1)
Quarter: 2018Q1

REPORT INFORMATION
  Report Type: Spontaneous
  Country: IT (occurrence: IT)
  Receive Date: 20180309
  Receipt Date: 20180309
  Transmission Date: 20180509
  Serious: Yes (Other)
  Sender: FDA-Public Use
  Company Number: IT-AUROBINDO-AUR-APL-2018-012374

PATIENT
  Age: 60 Year
  Sex: Male

DRUGS (2)
  1. ATENOLOL. [Suspect]
     Active Substance: ATENOLOL
     Indication: SUICIDAL BEHAVIOUR
     Dosage: UNK
     Route: 048
     Dates: start: 20170228, end: 20170228
  2. RAMIPRIL. [Suspect]
     Active Substance: RAMIPRIL
     Indication: SUICIDAL BEHAVIOUR
     Dosage: UNK
     Route: 048
     Dates: start: 20170228, end: 20170228

REACTIONS (3)
  - Intentional self-injury [Unknown]
  - Drug abuse [Unknown]
  - Vomiting [Unknown]

NARRATIVE: CASE EVENT DATE: 20170228
